FAERS Safety Report 20697028 (Version 7)
Quarter: 2022Q2

REPORT INFORMATION
  Report Type: Report from Study
  Country: CN (occurrence: CN)
  Receive Date: 20220411
  Receipt Date: 20220624
  Transmission Date: 20220721
  Serious: Yes (Hospitalization)
  Sender: FDA-Public Use
  Company Number: CN-KARYOPHARM-2022KPT000415

PATIENT
  Age: 62 Year
  Sex: Male
  Weight: 88 kg

DRUGS (23)
  1. RITUXIMAB [Suspect]
     Active Substance: RITUXIMAB
     Indication: Diffuse large B-cell lymphoma
     Dosage: 375 MG/M2, ON DAY 1 OF A 21-DAY CYCLE
     Route: 042
     Dates: start: 20220121
  2. GEMCITABINE [Suspect]
     Active Substance: GEMCITABINE
     Indication: Diffuse large B-cell lymphoma
     Dosage: 1000 MG/M2, ON DAYS 1 AND 8 OF A 21-DAY CYCLE
     Route: 042
     Dates: start: 20220121
  3. DEXAMETHASONE [Suspect]
     Active Substance: DEXAMETHASONE
     Indication: Diffuse large B-cell lymphoma
     Dosage: 20 MG, ON DAYS 1, 2, 3, AND 4 OF A 21-DAY CYCLE
     Route: 048
     Dates: start: 20220121
  4. CISPLATIN [Suspect]
     Active Substance: CISPLATIN
     Indication: Diffuse large B-cell lymphoma
     Dosage: 75 MG/M2, ON DAY 1 OF A 21-DAY CYCLE
     Route: 042
     Dates: start: 20220121
  5. ONDANSETRON [Concomitant]
     Active Substance: ONDANSETRON
     Indication: Supportive care
     Dosage: 8 MG, TID
     Route: 048
     Dates: start: 20220121, end: 20220121
  6. APREPITANT [Concomitant]
     Active Substance: APREPITANT
     Indication: Supportive care
     Dosage: 1 DOSAGE FORM, QD
     Route: 048
     Dates: start: 20220121, end: 20220123
  7. SODIUM CHLORIDE [Concomitant]
     Active Substance: SODIUM CHLORIDE
     Indication: Supportive care
     Dosage: UNK
     Route: 042
     Dates: start: 20220121, end: 20220121
  8. LEVOTHYROXINE [Concomitant]
     Active Substance: LEVOTHYROXINE
     Indication: Thyroid hormone replacement therapy
     Dosage: 75 UG, QD
     Route: 048
     Dates: start: 1996, end: 20220220
  9. HYDROCORTISONE ACETATE [Concomitant]
     Active Substance: HYDROCORTISONE ACETATE
     Indication: Thyroid hormone replacement therapy
     Dosage: 30 MG IN THE MORNING AND 20MG IN THE AFTERNOON
     Route: 048
     Dates: start: 1996, end: 20220220
  10. CALCIUM CARBONATE\VITAMIN D [Concomitant]
     Active Substance: CALCIUM CARBONATE\VITAMIN D
     Indication: Mineral supplementation
     Dosage: 1 DOSAGE FORM, QD
     Route: 048
     Dates: start: 1996, end: 20220220
  11. INSULIN ASPART 30 [Concomitant]
     Indication: Diabetes mellitus
     Dosage: 14 IU, TID
     Route: 058
     Dates: start: 2014, end: 20220127
  12. INSULIN ASPART 30 [Concomitant]
     Dosage: 16 IU, S.O.S.
     Route: 065
     Dates: start: 20220131, end: 20220220
  13. INSULIN NOS [Concomitant]
     Active Substance: INSULIN NOS
     Indication: Diabetes mellitus
     Dosage: 10 IU, QD
     Route: 042
     Dates: start: 20220127, end: 20220130
  14. POTASSIUM CHLORIDE [Concomitant]
     Active Substance: POTASSIUM CHLORIDE
     Indication: Hypokalaemia
     Dosage: 30 ML, SINGLE
     Route: 048
     Dates: start: 20220129, end: 20220129
  15. POTASSIUM CHLORIDE [Concomitant]
     Active Substance: POTASSIUM CHLORIDE
     Dosage: 35 ML, QD
     Route: 042
     Dates: start: 20220127, end: 20220130
  16. POTASSIUM CHLORIDE [Concomitant]
     Active Substance: POTASSIUM CHLORIDE
     Dosage: 10 ML, SINGLE
     Route: 048
     Dates: start: 20220127, end: 20220127
  17. POTASSIUM CHLORIDE [Concomitant]
     Active Substance: POTASSIUM CHLORIDE
     Dosage: 2 DOSAGE FORM, TID
     Route: 048
     Dates: start: 20220129
  18. MAGNESIUM SULFATE [Concomitant]
     Active Substance: MAGNESIUM SULFATE
     Indication: Hypokalaemia
     Dosage: 2.5 G, SINGLE
     Route: 042
     Dates: start: 20220127, end: 20220127
  19. PANTOPRAZOLE [Concomitant]
     Active Substance: PANTOPRAZOLE
     Indication: Prophylaxis
     Dosage: 1 DOSAGE FORM, QD
     Route: 048
     Dates: start: 20220127, end: 20220130
  20. MOXIFLOXACIN [Concomitant]
     Active Substance: MOXIFLOXACIN
     Indication: Inflammation
     Dosage: 0.4 G, QD
     Route: 048
     Dates: start: 20220128, end: 20220129
  21. MOXIFLOXACIN [Concomitant]
     Active Substance: MOXIFLOXACIN
     Dosage: 1 DOSAGE FORM, QD
     Route: 048
     Dates: start: 20220130
  22. NITROFURAZONE [Concomitant]
     Active Substance: NITROFURAZONE
     Indication: Inflammation
     Dosage: 500 ML, SINGLE
     Route: 061
     Dates: start: 20220128, end: 20220129
  23. THROMBOPOIETIN [Concomitant]
     Active Substance: THROMBOPOIETIN
     Indication: Platelet count decreased
     Dosage: 150000 IU, QD
     Route: 058
     Dates: start: 20220129

REACTIONS (1)
  - Thrombocytopenia [Not Recovered/Not Resolved]

NARRATIVE: CASE EVENT DATE: 20220211
